FAERS Safety Report 8010132-7 (Version None)
Quarter: 2011Q4

REPORT INFORMATION
  Report Type: 
  Country: None (occurrence: None)
  Receive Date: 20111228
  Receipt Date: 20111214
  Transmission Date: 20120403
  Serious: Yes (Other)
  Sender: FDA-Public Use
  Company Number: BR-SANOFI-AVENTIS-2011SA082228

PATIENT
  Age: 27 Year
  Sex: Male
  Weight: 83 kg

DRUGS (2)
  1. HUMALOG [Concomitant]
     Indication: TYPE 2 DIABETES MELLITUS
     Route: 058
     Dates: start: 20080101
  2. LANTUS [Suspect]
     Indication: TYPE 2 DIABETES MELLITUS
     Dosage: FORM: DISPOSABLE SYRINGES
     Route: 058
     Dates: start: 20080101

REACTIONS (1)
  - FEMUR FRACTURE [None]
